FAERS Safety Report 7333225-6 (Version None)
Quarter: 2011Q1

REPORT INFORMATION
  Report Type: 
  Country: None (occurrence: None)
  Receive Date: 20110224
  Receipt Date: 20110208
  Transmission Date: 20110831
  Serious: Yes (Hospitalization)
  Sender: FDA-Public Use
  Company Number: DSA_44982_2011

PATIENT
  Age: 76 Year
  Sex: Male

DRUGS (8)
  1. WARAN [Concomitant]
  2. SELOKENZOC [Concomitant]
  3. OMEPRAZOLE [Concomitant]
  4. ENALAPRIL MALEATE [Suspect]
     Indication: CARDIOVASCULAR INSUFFICIENCY
     Dosage: DF ORAL, UNSPECIFIED LOWER DOSE ORAL
     Route: 048
  5. ACETAMINOPHEN [Concomitant]
  6. PREDNISOLONE [Suspect]
     Indication: PRODUCT USED FOR UNKNOWN INDICATION
     Dosage: DF
  7. FOLACIN [Concomitant]
  8. FURIX [Concomitant]

REACTIONS (4)
  - HYPERGLYCAEMIA [None]
  - MUSCULOSKELETAL PAIN [None]
  - RENAL FAILURE ACUTE [None]
  - DEHYDRATION [None]
